FAERS Safety Report 8986399 (Version 3)
Quarter: 2013Q3

REPORT INFORMATION
  Report Type: Spontaneous
  Country: US (occurrence: None)
  Receive Date: 20121217
  Receipt Date: 20130715
  Transmission Date: 20140515
  Serious: Yes (Hospitalization)
  Sender: FDA-Public Use
  Company Number: US-JNJFOC-20121200581

PATIENT
  Age: 72 Year
  Sex: Male
  Weight: 95 kg

DRUGS (12)
  1. DECITABINE [Suspect]
     Indication: ACUTE MYELOID LEUKAEMIA
     Route: 042
     Dates: start: 20120814, end: 20120814
  2. VELCADE [Suspect]
     Indication: ACUTE MYELOID LEUKAEMIA
     Route: 058
     Dates: start: 20120814, end: 20120814
  3. FLUCONAZOLE [Concomitant]
  4. ACYCLOVIR [Concomitant]
  5. CADUET [Concomitant]
  6. DOCUSATE SODIUM [Concomitant]
  7. ESOMEPRAZOLE [Concomitant]
  8. LORATADINE [Concomitant]
  9. MOXIFLOXACIN [Concomitant]
  10. OXYCODONE [Concomitant]
  11. PIMECROLIMUS [Concomitant]
  12. SENOKOT [Concomitant]

REACTIONS (6)
  - Pneumonia [None]
  - Neutropenia [None]
  - Renal failure acute [None]
  - Lung infection [None]
  - Febrile neutropenia [None]
  - Device related infection [None]
